FAERS Safety Report 6667217-7 (Version None)
Quarter: 2010Q2

REPORT INFORMATION
  Report Type: 
  Country: None (occurrence: None)
  Receive Date: 20100405
  Receipt Date: 20100303
  Transmission Date: 20101027
  Serious: No
  Sender: FDA-Public Use
  Company Number: US-BAYER-201016150NA

PATIENT
  Sex: Female

DRUGS (1)
  1. MIRENA [Suspect]
     Indication: MENSTRUAL DISORDER
     Dosage: FREQUENCY CONTINUOUS
     Route: 015
     Dates: start: 20100126

REACTIONS (1)
  - MEDICAL DEVICE COMPLICATION [None]
